FAERS Safety Report 16767431 (Version 1)
Quarter: 2019Q4

REPORT INFORMATION
  Report Type: Spontaneous
  Country: US (occurrence: US)
  Receive Date: 20190903
  Receipt Date: 20190903
  Transmission Date: 20200122
  Serious: No
  Sender: FDA-Public Use
  Company Number: None

PATIENT
  Age: 28 Year
  Sex: Female
  Weight: 58.5 kg

DRUGS (1)
  1. DUPIXENT [Suspect]
     Active Substance: DUPILUMAB
     Indication: ECZEMA
     Dosage: ?          QUANTITY:2 INJECTION(S);OTHER FREQUENCY:EVERY 2 WEEKS;OTHER ROUTE:SUBCUTANEOUS INJECTION?
     Dates: start: 20190902

REACTIONS (4)
  - Back pain [None]
  - Headache [None]
  - Nausea [None]
  - Injection site pain [None]

NARRATIVE: CASE EVENT DATE: 20190903
